FAERS Safety Report 9239051 (Version 1)
Quarter: 2013Q2

REPORT INFORMATION
  Report Type: Spontaneous
  Country: US (occurrence: US)
  Receive Date: 20130418
  Receipt Date: 20130418
  Transmission Date: 20140414
  Serious: No
  Sender: FDA-Public Use
  Company Number: US-BAYER-2013-048639

PATIENT
  Age: 74 Year
  Sex: Female
  Weight: 104.31 kg

DRUGS (4)
  1. ALEVE CAPLET [Suspect]
     Indication: ARTHRITIS
     Dosage: 3 DF, UNK
     Route: 048
     Dates: start: 2003
  2. SYNTHROID [Concomitant]
  3. ECOTRIN [Concomitant]
  4. JANUVIA [Concomitant]

REACTIONS (2)
  - Pre-existing condition improved [None]
  - Incorrect drug administration duration [None]
